FAERS Safety Report 6784918-0 (Version None)
Quarter: 2010Q2

REPORT INFORMATION
  Report Type: 
  Country: None (occurrence: None)
  Receive Date: 20100618
  Receipt Date: 20100610
  Transmission Date: 20101027
  Serious: Yes (Hospitalization, Other)
  Sender: FDA-Public Use
  Company Number: USA/USA/10/0012621

PATIENT
  Age: 50 Year
  Sex: Male
  Weight: 118.2074 kg

DRUGS (13)
  1. GLIMEPIRIDE [Suspect]
     Indication: DIABETES MELLITUS
     Dosage: 6 MG, 1 IN 1 D, PER ORAL; 4 MG, 1 IN 1 D, PER ORAL
     Route: 048
     Dates: start: 20091027, end: 20100221
  2. GLIMEPIRIDE [Suspect]
     Indication: DIABETES MELLITUS
     Dosage: 6 MG, 1 IN 1 D, PER ORAL; 4 MG, 1 IN 1 D, PER ORAL
     Route: 048
     Dates: start: 20100222
  3. STUDY DRUG [Suspect]
     Indication: DIABETES MELLITUS
     Dates: start: 20091106, end: 20100421
  4. METFORMIN HCL [Concomitant]
  5. OMEPRAZOLE [Concomitant]
  6. ATENOLOL [Concomitant]
  7. HYDROCHLOROTHIAZIDE [Concomitant]
  8. ENALAPRIL MALEATE [Concomitant]
  9. SIMVASTATIN [Concomitant]
  10. LEVOTHYROXINE SODIUM [Concomitant]
  11. AMLODIPINE [Concomitant]
  12. ASPIRIN [Concomitant]
  13. HYDROCODONE-APAP (PROCET /01554201/) [Concomitant]

REACTIONS (6)
  - AMNESIA [None]
  - DRUG SCREEN POSITIVE [None]
  - HYPOKALAEMIA [None]
  - METABOLIC ENCEPHALOPATHY [None]
  - MYOCLONUS [None]
  - TREATMENT NONCOMPLIANCE [None]
